FAERS Safety Report 25235368 (Version 4)
Quarter: 2025Q3

REPORT INFORMATION
  Report Type: Spontaneous
  Country: JP (occurrence: JP)
  Receive Date: 20250424
  Receipt Date: 20250925
  Transmission Date: 20251020
  Serious: Yes (Death)
  Sender: JOHNSON AND JOHNSON
  Company Number: JP-NShinyaku-EVA20250561401001307081

PATIENT
  Age: 84 Year
  Sex: Female

DRUGS (3)
  1. UPTRAVI [Suspect]
     Active Substance: SELEXIPAG
     Indication: Pulmonary arterial hypertension
     Route: 048
  2. OPSUMIT [Concomitant]
     Active Substance: MACITENTAN
     Indication: Pulmonary arterial hypertension
     Route: 048
  3. TADALAFIL:AD [Concomitant]
     Indication: Pulmonary arterial hypertension
     Route: 048

REACTIONS (1)
  - Pulmonary arterial hypertension [Fatal]
